FAERS Safety Report 7279604-7 (Version None)
Quarter: 2011Q1

REPORT INFORMATION
  Report Type: 
  Country: None (occurrence: None)
  Receive Date: 20110203
  Receipt Date: 20110203
  Transmission Date: 20110831
  Serious: Yes (Hospitalization)
  Sender: FDA-Public Use
  Company Number: None

PATIENT
  Sex: Female
  Weight: 73.44 kg

DRUGS (1)
  1. LENALIDOMIDE [Suspect]
     Indication: ACUTE MYELOID LEUKAEMIA
     Dosage: 5MG QD 1-21 ORAL
     Route: 048

REACTIONS (6)
  - CHEST DISCOMFORT [None]
  - COUGH [None]
  - NEUTROPENIA [None]
  - INFLUENZA A VIRUS TEST POSITIVE [None]
  - PYREXIA [None]
  - MYALGIA [None]
